FAERS Safety Report 19069911 (Version 1)
Quarter: 2021Q1

REPORT INFORMATION
  Report Type: Spontaneous
  Country: JP (occurrence: JP)
  Receive Date: 20210329
  Receipt Date: 20210329
  Transmission Date: 20210420
  Serious: Yes (Other)
  Sender: FDA-Public Use
  Company Number: JP-TAIHO ONCOLOGY  INC-JPTT210114

PATIENT
  Age: 64 Year
  Sex: Male

DRUGS (2)
  1. LONSURF [Suspect]
     Active Substance: TIPIRACIL HYDROCHLORIDE\TRIFLURIDINE
     Indication: COLON CANCER
     Dosage: DETAILS NOT REPORTED, ADMINISTERED FOR APPROXIMATELY 1 YEAR
     Route: 048
     Dates: start: 2020
  2. BEVACIZUMAB(GENETICAL RECOMBINATION) [Suspect]
     Active Substance: BEVACIZUMAB
     Indication: COLON CANCER
     Dosage: DETAILS NOT REPORTED, ADMINISTERED FOR APPROXIMATELY 1 YEAR
     Route: 041
     Dates: start: 2020

REACTIONS (2)
  - Jaundice [Recovered/Resolved]
  - Blood bilirubin increased [Unknown]
